FAERS Safety Report 7068910-7 (Version None)
Quarter: 2010Q4

REPORT INFORMATION
  Report Type: 
  Country: None (occurrence: None)
  Receive Date: 20101028
  Receipt Date: 20101025
  Transmission Date: 20110411
  Serious: Yes (Hospitalization)
  Sender: FDA-Public Use
  Company Number: US-PERRIGO-10US012588

PATIENT
  Sex: Male
  Weight: 105.22 kg

DRUGS (2)
  1. TRPL ANTIBIOTIC PLUS OINT 679 [Suspect]
     Indication: EXCORIATION
     Dosage: APPLIED TO HANDS, SINGLE
     Route: 061
     Dates: start: 20100826, end: 20100826
  2. TRPL ANTIBIOTIC PLUS OINT 679 [Suspect]
     Indication: BLISTER

REACTIONS (10)
  - APPLICATION SITE ERYTHEMA [None]
  - APPLICATION SITE PRURITUS [None]
  - APPLICATION SITE SWELLING [None]
  - AURICULAR SWELLING [None]
  - BLOOD PRESSURE INCREASED [None]
  - HEADACHE [None]
  - HEART RATE INCREASED [None]
  - HYPERSENSITIVITY [None]
  - HYPOACUSIS [None]
  - SWELLING FACE [None]
